FAERS Safety Report 8112125-8 (Version None)
Quarter: 2012Q1

REPORT INFORMATION
  Report Type: 
  Country: None (occurrence: None)
  Receive Date: 20120203
  Receipt Date: 20120126
  Transmission Date: 20120608
  Serious: Yes (Hospitalization, Other)
  Sender: FDA-Public Use
  Company Number: FR-PFIZER INC-2010056457

PATIENT
  Age: 83 Year
  Sex: Female

DRUGS (12)
  1. BUMETANIDE [Suspect]
     Indication: CARDIAC FAILURE
     Dosage: UNK
     Dates: start: 20100427
  2. OFLOXACIN [Concomitant]
     Indication: URINARY TRACT INFECTION
     Dosage: UNK
     Dates: start: 20100413, end: 20100419
  3. LOXEN [Concomitant]
  4. ANCOTIL [Concomitant]
     Indication: INTERVERTEBRAL DISCITIS
     Dosage: UNK
     Dates: start: 20100309, end: 20100326
  5. FLUCONAZOLE [Suspect]
     Indication: INTERVERTEBRAL DISCITIS
     Dosage: 200 MG, 2X/DAY
     Route: 048
     Dates: start: 20100309, end: 20100422
  6. DURAGESIC-100 [Concomitant]
  7. BUMETANIDE [Suspect]
     Dosage: 1 MG, 1X/DAY
     Route: 048
     Dates: start: 20091230, end: 20100422
  8. NEXIUM [Suspect]
     Dosage: 20 MG, 1X/DAY
     Route: 048
     Dates: end: 20100422
  9. ACETAMINOPHEN [Concomitant]
  10. RAMIPRIL [Suspect]
     Indication: HYPERTENSION
     Dosage: 2.5 MG, 1X/DAY
     Route: 048
     Dates: start: 20100222, end: 20100422
  11. HYDROCORTISONE [Concomitant]
  12. POTASSIUM CHLORIDE [Concomitant]

REACTIONS (3)
  - PYREXIA [None]
  - AGRANULOCYTOSIS [None]
  - URINARY TRACT INFECTION [None]
